FAERS Safety Report 6568651-6 (Version None)
Quarter: 2010Q1

REPORT INFORMATION
  Report Type: 
  Country: None (occurrence: None)
  Receive Date: 20100203
  Receipt Date: 20100121
  Transmission Date: 20100710
  Serious: Yes (Hospitalization)
  Sender: FDA-Public Use
  Company Number: PHHY2010FR03334

PATIENT
  Sex: Male

DRUGS (10)
  1. TAREG [Suspect]
     Dosage: UNK
     Route: 048
     Dates: end: 20091126
  2. FUROSEMIDE [Suspect]
     Dosage: UNK
     Route: 048
     Dates: end: 20091126
  3. CORDARONE [Concomitant]
     Route: 065
  4. PREVISCAN [Concomitant]
     Dosage: 20 MG
     Route: 048
  5. TAHOR [Concomitant]
     Route: 065
  6. TEMERIT [Concomitant]
     Route: 065
  7. TANGANIL [Concomitant]
     Route: 065
  8. POTASSIUM CHLORIDE [Concomitant]
     Route: 065
  9. SPECIAFOLDINE [Concomitant]
     Route: 065
  10. FUMAFER [Concomitant]
     Route: 065

REACTIONS (4)
  - HAEMATOMA [None]
  - HAEMOLYTIC ANAEMIA [None]
  - OVERDOSE [None]
  - RENAL FAILURE ACUTE [None]
